FAERS Safety Report 8823228 (Version 3)
Quarter: 2012Q4

REPORT INFORMATION
  Report Type: Report from Study
  Country: TH (occurrence: TH)
  Receive Date: 20121003
  Receipt Date: 20121116
  Transmission Date: 20130627
  Serious: Yes (Hospitalization)
  Sender: FDA-Public Use
  Company Number: TH-ROCHE-1136069

PATIENT
  Age: 23 Year
  Sex: Male
  Weight: 56.2 kg

DRUGS (17)
  1. RITUXIMAB [Suspect]
     Indication: DIFFUSE LARGE B-CELL LYMPHOMA
     Dosage: date of most recent dose prior to AE: 31/May/2012. Dose concentration was 1 mg/ml, last volume taken
     Route: 042
     Dates: start: 20120105
  2. CYCLOPHOSPHAMIDE [Suspect]
     Indication: DIFFUSE LARGE B-CELL LYMPHOMA
     Dosage: date of most recent dose prior to AE was on 31/May/2012. last dose taken: 1185 mg
     Route: 042
     Dates: start: 20120105
  3. DOXORUBICIN [Suspect]
     Indication: DIFFUSE LARGE B-CELL LYMPHOMA
     Dosage: date of most recent dose prior to AE was on 31/May/2012. last dose taken: 79 mg
     Route: 042
     Dates: start: 20120105
  4. VINCRISTINE [Suspect]
     Indication: DIFFUSE LARGE B-CELL LYMPHOMA
     Dosage: date of most recent dose prior to AE was on 31/May/2012. last dose taken: 2 mg
     Route: 042
     Dates: start: 20120105
  5. PREDNISONE [Suspect]
     Indication: DIFFUSE LARGE B-CELL LYMPHOMA
     Dosage: date of most recent dose prior to AE was on 04/6/2012. last dose taken: 100 mg
     Route: 048
     Dates: start: 20111231
  6. PREDNISONE [Suspect]
     Indication: ADRENAL INSUFFICIENCY
     Route: 048
     Dates: start: 20120921, end: 20121014
  7. ISONIAZID [Suspect]
     Indication: TUBERCULOSIS
     Route: 065
     Dates: start: 20120705, end: 20120922
  8. ISONIAZID [Suspect]
     Route: 065
     Dates: start: 20120922
  9. RIFAMPICIN [Suspect]
     Indication: TUBERCULOSIS
     Route: 065
     Dates: start: 20120705, end: 20120922
  10. VITAMIN B6 [Concomitant]
     Route: 065
     Dates: start: 20120705, end: 20120921
  11. VITAMIN B6 [Concomitant]
     Route: 065
     Dates: start: 20120922
  12. ETHAMBUTOL [Concomitant]
     Indication: TUBERCULOSIS
     Route: 065
     Dates: start: 20120705, end: 20120914
  13. PYRAZINAMIDE [Concomitant]
     Indication: TUBERCULOSIS
     Route: 065
     Dates: start: 20120705, end: 20120914
  14. MOLAX [Concomitant]
     Indication: NAUSEA
     Route: 065
     Dates: start: 20120914, end: 20120921
  15. SODIUM BICARBONATE [Concomitant]
     Route: 065
     Dates: start: 20120921
  16. MAGNESIUM HYDROXIDE [Concomitant]
     Route: 065
     Dates: start: 20120921
  17. POTASSIUM CHLORIDE [Concomitant]
     Indication: HYPOKALAEMIA
     Route: 065
     Dates: start: 20120921

REACTIONS (2)
  - Renal failure acute [Recovered/Resolved]
  - Hypokalaemia [Recovered/Resolved]
